FAERS Safety Report 17434350 (Version 3)
Quarter: 2020Q1

REPORT INFORMATION
  Report Type: Report from Study
  Country: DE (occurrence: DE)
  Receive Date: 20200219
  Receipt Date: 20200306
  Transmission Date: 20200409
  Serious: Yes (Death, Hospitalization, Other)
  Sender: FDA-Public Use
  Company Number: DE-ASTRAZENECA-2020SE23040

PATIENT
  Sex: Female
  Weight: 51 kg

DRUGS (3)
  1. KISQALI [Suspect]
     Active Substance: RIBOCICLIB
     Indication: BREAST CANCER METASTATIC
     Dosage: 600 MG ADMINISTRATION SCHEME 21 DAYS INTAKE, 7 DAYS
     Route: 048
     Dates: start: 20200108, end: 20200113
  2. FULVESTRANT. [Suspect]
     Active Substance: FULVESTRANT
     Indication: BREAST CANCER METASTATIC
     Route: 030
     Dates: start: 20191224, end: 20191231
  3. KISQALI [Suspect]
     Active Substance: RIBOCICLIB
     Indication: BREAST CANCER METASTATIC
     Dosage: 600 MG ADMINISTRATION SCHEME 21 DAYS INTAKE, 7 DAYS
     Route: 048
     Dates: start: 20191224, end: 20191231

REACTIONS (13)
  - Dizziness [Recovered/Resolved]
  - Nausea [Recovered/Resolved]
  - Respiratory failure [Fatal]
  - Painful respiration [Fatal]
  - Chronic obstructive pulmonary disease [Fatal]
  - Fatigue [Recovered/Resolved]
  - Constipation [Not Recovered/Not Resolved]
  - Chills [Recovered/Resolved]
  - Metastases to bone [Unknown]
  - Diarrhoea [Recovered/Resolved]
  - Pain [Not Recovered/Not Resolved]
  - Metastases to thorax [Unknown]
  - Cardiac failure [Fatal]

NARRATIVE: CASE EVENT DATE: 20191224
